FAERS Safety Report 7029079-8 (Version None)
Quarter: 2010Q4

REPORT INFORMATION
  Report Type: 
  Country: None (occurrence: None)
  Receive Date: 20101005
  Receipt Date: 20100926
  Transmission Date: 20110411
  Serious: Yes (Death)
  Sender: FDA-Public Use
  Company Number: B0676677A

PATIENT
  Age: 74 Year
  Sex: Male

DRUGS (1)
  1. AVANDAMET [Suspect]
     Dosage: 4MG THREE TIMES PER DAY
     Route: 048

REACTIONS (8)
  - ABDOMINAL PAIN UPPER [None]
  - CARDIAC ARREST [None]
  - CHEST PAIN [None]
  - DYSPNOEA [None]
  - FALL [None]
  - HYPOAESTHESIA [None]
  - MALAISE [None]
  - OEDEMA [None]
